FAERS Safety Report 15977303 (Version 6)
Quarter: 2019Q3

REPORT INFORMATION
  Report Type: Spontaneous
  Country: US (occurrence: US)
  Receive Date: 20190218
  Receipt Date: 20190925
  Transmission Date: 20191004
  Serious: Yes (Other)
  Sender: FDA-Public Use
  Company Number: US-ASTRAZENECA-2018SF14715

PATIENT
  Age: 600 Month
  Sex: Male
  Weight: 132.4 kg

DRUGS (40)
  1. PROTONIX [Concomitant]
     Active Substance: PANTOPRAZOLE SODIUM
  2. GABAPENTIN. [Concomitant]
     Active Substance: GABAPENTIN
  3. VITAMIN D [Concomitant]
     Active Substance: VITAMIN D NOS
  4. NEXIUM [Suspect]
     Active Substance: ESOMEPRAZOLE MAGNESIUM
     Indication: GASTROOESOPHAGEAL REFLUX DISEASE
     Route: 048
     Dates: start: 20180430
  5. PRILOSEC OTC [Suspect]
     Active Substance: OMEPRAZOLE MAGNESIUM
     Indication: GASTROOESOPHAGEAL REFLUX DISEASE
     Route: 048
     Dates: start: 20030720, end: 20180101
  6. PRILOSEC OTC [Suspect]
     Active Substance: OMEPRAZOLE MAGNESIUM
     Indication: GASTROOESOPHAGEAL REFLUX DISEASE
     Route: 048
     Dates: start: 200307, end: 201801
  7. PANTOPRAZOLE [Suspect]
     Active Substance: PANTOPRAZOLE
     Indication: GASTROOESOPHAGEAL REFLUX DISEASE
     Route: 065
  8. LANTUS [Concomitant]
     Active Substance: INSULIN GLARGINE
  9. LOVASTATIN. [Concomitant]
     Active Substance: LOVASTATIN
  10. GLIPIZIDE. [Concomitant]
     Active Substance: GLIPIZIDE
  11. TOPIRAMATE. [Concomitant]
     Active Substance: TOPIRAMATE
  12. TRAZODONE [Concomitant]
     Active Substance: TRAZODONE HYDROCHLORIDE
  13. ASPIRIN. [Concomitant]
     Active Substance: ASPIRIN
  14. TRAZODONE [Concomitant]
     Active Substance: TRAZODONE HYDROCHLORIDE
  15. PRILOSEC OTC [Suspect]
     Active Substance: OMEPRAZOLE MAGNESIUM
     Indication: GASTROOESOPHAGEAL REFLUX DISEASE
     Route: 048
  16. FENOFIBRATE. [Concomitant]
     Active Substance: FENOFIBRATE
  17. NOVOLOG [Concomitant]
     Active Substance: INSULIN ASPART
  18. IBUPROFEN. [Concomitant]
     Active Substance: IBUPROFEN
  19. MONTELUKAST [Concomitant]
     Active Substance: MONTELUKAST SODIUM
  20. PRILOSEC [Suspect]
     Active Substance: OMEPRAZOLE MAGNESIUM
     Indication: GASTROOESOPHAGEAL REFLUX DISEASE
     Dosage: GENERIC
     Route: 065
     Dates: start: 200802, end: 200803
  21. SINGULAIR [Concomitant]
     Active Substance: MONTELUKAST SODIUM
  22. BUPROPION. [Concomitant]
     Active Substance: BUPROPION
  23. NEXIUM [Suspect]
     Active Substance: ESOMEPRAZOLE MAGNESIUM
     Indication: GASTROOESOPHAGEAL REFLUX DISEASE
     Route: 048
     Dates: start: 201409, end: 201712
  24. PRILOSEC [Suspect]
     Active Substance: OMEPRAZOLE MAGNESIUM
     Indication: GASTROOESOPHAGEAL REFLUX DISEASE
     Route: 048
  25. PANTOPRAZOLE [Suspect]
     Active Substance: PANTOPRAZOLE
     Indication: GASTROOESOPHAGEAL REFLUX DISEASE
     Dosage: GENERIC
     Route: 065
     Dates: start: 201601, end: 201802
  26. WELLBUTRIN [Concomitant]
     Active Substance: BUPROPION HYDROCHLORIDE
  27. QUETIAPINE FUMARATE. [Concomitant]
     Active Substance: QUETIAPINE FUMARATE
  28. DESVENLAFAXINE. [Concomitant]
     Active Substance: DESVENLAFAXINE
  29. ATORVASTATIN [Concomitant]
     Active Substance: ATORVASTATIN
  30. GLIPIZIDE. [Concomitant]
     Active Substance: GLIPIZIDE
  31. FISH OIL [Concomitant]
     Active Substance: FISH OIL
  32. TOPIRAMATE. [Concomitant]
     Active Substance: TOPIRAMATE
  33. QUETIAPINE. [Concomitant]
     Active Substance: QUETIAPINE
  34. NEXIUM [Suspect]
     Active Substance: ESOMEPRAZOLE MAGNESIUM
     Indication: GASTROOESOPHAGEAL REFLUX DISEASE
     Dosage: GENERIC
     Route: 065
     Dates: start: 201707, end: 201802
  35. NEXIUM 24HR [Suspect]
     Active Substance: ESOMEPRAZOLE MAGNESIUM
     Indication: GASTROOESOPHAGEAL REFLUX DISEASE
     Route: 048
     Dates: start: 20170710, end: 20181201
  36. NEXIUM 24HR [Suspect]
     Active Substance: ESOMEPRAZOLE MAGNESIUM
     Indication: GASTROOESOPHAGEAL REFLUX DISEASE
     Route: 048
     Dates: start: 201707, end: 201812
  37. HYDROCHLOROTHIAZIDE. [Concomitant]
     Active Substance: HYDROCHLOROTHIAZIDE
  38. NOVOLIN [Concomitant]
     Active Substance: INSULIN HUMAN
  39. FUROSEMIDE. [Concomitant]
     Active Substance: FUROSEMIDE
  40. TRADJENTA [Concomitant]
     Active Substance: LINAGLIPTIN

REACTIONS (3)
  - Tubulointerstitial nephritis [Unknown]
  - Renal injury [Unknown]
  - Chronic kidney disease [Not Recovered/Not Resolved]

NARRATIVE: CASE EVENT DATE: 201707
